FAERS Safety Report 22176183 (Version 1)
Quarter: 2023Q2

REPORT INFORMATION
  Report Type: Spontaneous
  Country: US (occurrence: None)
  Receive Date: 20230404
  Receipt Date: 20230404
  Transmission Date: 20230721
  Serious: No
  Sender: FDA-Public Use
  Company Number: None

PATIENT
  Age: 70 Year
  Sex: Female

DRUGS (1)
  1. POMALYST [Suspect]
     Active Substance: POMALIDOMIDE
     Indication: Plasma cell myeloma
     Dosage: 1MG QD ORAL?
     Route: 048
     Dates: start: 20230228

REACTIONS (3)
  - Pyrexia [None]
  - Oropharyngeal pain [None]
  - Neutrophil count decreased [None]

NARRATIVE: CASE EVENT DATE: 20230404
